FAERS Safety Report 8443309-7 (Version None)
Quarter: 2012Q2

REPORT INFORMATION
  Report Type: 
  Country: None (occurrence: None)
  Receive Date: 20120618
  Receipt Date: 20120529
  Transmission Date: 20120825
  Serious: No
  Sender: FDA-Public Use
  Company Number: US-ASTRAZENECA-2011SE73956

PATIENT
  Age: 59 Year
  Sex: Female

DRUGS (1)
  1. NEXIUM [Suspect]
     Route: 048

REACTIONS (10)
  - MULTIPLE FRACTURES [None]
  - TREMOR [None]
  - PALPITATIONS [None]
  - DRUG DOSE OMISSION [None]
  - WEIGHT DECREASED [None]
  - DYSPEPSIA [None]
  - OSTEOPOROSIS [None]
  - FOAMING AT MOUTH [None]
  - MALAISE [None]
  - VOMITING [None]
